FAERS Safety Report 14226522 (Version 1)
Quarter: 2017Q4

REPORT INFORMATION
  Report Type: Report from Study
  Country: CA (occurrence: CA)
  Receive Date: 20171127
  Receipt Date: 20171127
  Transmission Date: 20180321
  Serious: Yes (Other)
  Sender: FDA-Public Use
  Company Number: CA-AMGEN-CANSL2017174630

PATIENT
  Age: 39 Year
  Sex: Male

DRUGS (1)
  1. BLINATUMOMAB [Suspect]
     Active Substance: BLINATUMOMAB
     Indication: B PRECURSOR TYPE ACUTE LEUKAEMIA
     Dosage: 38.5 MUG, UNK
     Route: 065
     Dates: start: 20171120, end: 201711

REACTIONS (1)
  - Acute lymphocytic leukaemia [Unknown]

NARRATIVE: CASE EVENT DATE: 201711
